FAERS Safety Report 22676878 (Version 7)
Quarter: 2024Q1

REPORT INFORMATION
  Report Type: Report from Study
  Country: DE (occurrence: DE)
  Receive Date: 20230706
  Receipt Date: 20240122
  Transmission Date: 20240410
  Serious: Yes (Hospitalization, Other)
  Sender: FDA-Public Use
  Company Number: DE-PFM-2023-03699

PATIENT
  Age: 79 Year
  Sex: Male
  Weight: 94 kg

DRUGS (4)
  1. BRAFTOVI [Suspect]
     Active Substance: ENCORAFENIB
     Indication: Colorectal cancer
     Dosage: 300 MG, DAILY
     Route: 048
     Dates: start: 20230609
  2. BRAFTOVI [Suspect]
     Active Substance: ENCORAFENIB
     Dosage: UNK
     Route: 048
     Dates: end: 20230825
  3. CETUXIMAB [Suspect]
     Active Substance: CETUXIMAB
     Indication: Colorectal cancer
     Dosage: 250 MG/M2 (590 MG), WEEKLY (LIQUID DILUTION)
     Route: 042
     Dates: start: 20230609
  4. CETUXIMAB [Suspect]
     Active Substance: CETUXIMAB
     Dosage: UNK, (LIQUID DILUTION  )
     Route: 042
     Dates: start: 20230706, end: 20230825

REACTIONS (3)
  - Hypertension [Unknown]
  - Hypersensitivity [Recovered/Resolved]
  - Fatigue [Recovering/Resolving]

NARRATIVE: CASE EVENT DATE: 20230615
